FAERS Safety Report 16953741 (Version 1)
Quarter: 2019Q4

REPORT INFORMATION
  Report Type: Spontaneous
  Country: US (occurrence: US)
  Receive Date: 20191023
  Receipt Date: 20191023
  Transmission Date: 20200122
  Serious: Yes (Hospitalization)
  Sender: FDA-Public Use
  Company Number: US-RIGEL PHARMACEUTICALS, INC.-2019FOS000515

PATIENT
  Age: 71 Year
  Sex: Male
  Weight: 89.34 kg

DRUGS (2)
  1. TAVALISSE [Suspect]
     Active Substance: FOSTAMATINIB
     Dosage: UNK
  2. TAVALISSE [Suspect]
     Active Substance: FOSTAMATINIB
     Dosage: 100 MG, BID
     Route: 048
     Dates: start: 201905

REACTIONS (4)
  - White blood cell count decreased [Unknown]
  - Platelet count decreased [Unknown]
  - Product dose omission [Unknown]
  - Localised infection [Unknown]

NARRATIVE: CASE EVENT DATE: 201910
